FAERS Safety Report 24015244 (Version 1)
Quarter: 2024Q2

REPORT INFORMATION
  Report Type: Report from Study
  Country: US (occurrence: US)
  Receive Date: 20240626
  Receipt Date: 20240626
  Transmission Date: 20240716
  Serious: No
  Sender: FDA-Public Use
  Company Number: US-AstraZeneca-CH-00650004A

PATIENT
  Sex: Female

DRUGS (1)
  1. STRENSIQ [Suspect]
     Active Substance: ASFOTASE ALFA
     Indication: Hypophosphatasia
     Dosage: 65 MILLIGRAM, SIX TIMES/WEEK
     Route: 058
     Dates: start: 20240528

REACTIONS (2)
  - Fatigue [Recovered/Resolved with Sequelae]
  - Injection site reaction [Unknown]
